FAERS Safety Report 22611052 (Version 1)
Quarter: 2023Q2

REPORT INFORMATION
  Report Type: Report from Study
  Country: GB (occurrence: GB)
  Receive Date: 20230616
  Receipt Date: 20230616
  Transmission Date: 20230721
  Serious: Yes (Hospitalization)
  Sender: FDA-Public Use
  Company Number: GB-CHUGAI-2023020249

PATIENT
  Sex: Male

DRUGS (6)
  1. FLUDARABINE [Suspect]
     Active Substance: FLUDARABINE PHOSPHATE
     Indication: Product used for unknown indication
     Dosage: UNK, DURATION: 4 DAYS
     Route: 065
     Dates: start: 20150422, end: 20150425
  2. IDARUBICIN [Suspect]
     Active Substance: IDARUBICIN
     Indication: Product used for unknown indication
     Dosage: UNK, DURATION: 4 DAYS
     Route: 065
     Dates: start: 20150422, end: 20150425
  3. CYTARABINE [Suspect]
     Active Substance: CYTARABINE
     Indication: Acute myeloid leukaemia
     Dosage: UNK, DURATION: 4 DAYS
     Route: 065
     Dates: start: 20150422, end: 20150425
  4. FLUCLOXACILLIN [Suspect]
     Active Substance: FLUCLOXACILLIN
     Indication: Product used for unknown indication
     Dosage: UNK
     Route: 042
  5. LENOGRASTIM [Suspect]
     Active Substance: LENOGRASTIM
     Indication: Product used for unknown indication
     Dosage: UNK, DURATION: 6 DAYS
     Route: 065
     Dates: start: 20150421, end: 20150426
  6. QUIZARTINIB [Suspect]
     Active Substance: QUIZARTINIB
     Indication: Product used for unknown indication
     Route: 065

REACTIONS (7)
  - Pyrexia [Recovered/Resolved]
  - Dyspnoea [Recovered/Resolved]
  - Staphylococcal infection [Recovered/Resolved]
  - Psychotic disorder [Recovered/Resolved]
  - Agitation [Recovered/Resolved]
  - Skin lesion [Recovered/Resolved]
  - Pneumonia [Recovered/Resolved]

NARRATIVE: CASE EVENT DATE: 20150423
